FAERS Safety Report 15711809 (Version 1)
Quarter: 2018Q4

REPORT INFORMATION
  Report Type: Spontaneous
  Country: GB (occurrence: GB)
  Receive Date: 20181212
  Receipt Date: 20181212
  Transmission Date: 20190205
  Serious: No
  Sender: FDA-Public Use
  Company Number: GB-LUPIN PHARMACEUTICALS INC.-2018-03849

PATIENT
  Sex: Female

DRUGS (1)
  1. MAEXENI 150/30 MICROGRAM FILM COATED TABLETS [Suspect]
     Active Substance: ETHINYL ESTRADIOL\LEVONORGESTREL
     Indication: ORAL CONTRACEPTION
     Dosage: UNK
     Route: 065

REACTIONS (4)
  - No adverse event [None]
  - Product taste abnormal [Unknown]
  - Product packaging issue [Unknown]
  - Product use complaint [Unknown]
